FAERS Safety Report 9795452 (Version 1)
Quarter: 2014Q1

REPORT INFORMATION
  Report Type: Spontaneous
  Country: US (occurrence: US)
  Receive Date: 20140103
  Receipt Date: 20140103
  Transmission Date: 20141002
  Serious: No
  Sender: FDA-Public Use
  Company Number: US-BAYER-2013-151852

PATIENT
  Age: 31 Year
  Sex: Male

DRUGS (2)
  1. ADEMPAS [Suspect]
     Indication: PULMONARY ARTERIAL HYPERTENSION
     Dosage: 0.5 MG, TID
     Dates: start: 20131118, end: 20131204
  2. ADEMPAS [Suspect]
     Indication: PULMONARY ARTERIAL HYPERTENSION
     Dosage: 0.5 MG, TID
     Route: 048
     Dates: start: 20131114, end: 20131201

REACTIONS (3)
  - Photosensitivity reaction [Recovered/Resolved]
  - Vision blurred [Recovered/Resolved]
  - Headache [None]
